FAERS Safety Report 4874724-6 (Version None)
Quarter: 2006Q1

REPORT INFORMATION
  Report Type: 
  Country: None (occurrence: None)
  Receive Date: 20060106
  Receipt Date: 20051014
  Transmission Date: 20060701
  Serious: Yes (Other)
  Sender: FDA-Public Use
  Company Number: US-MERCK-0510USA07385

PATIENT
  Age: 52 Year
  Sex: Male
  Weight: 102 kg

DRUGS (16)
  1. VIOXX [Suspect]
     Indication: ROAD TRAFFIC ACCIDENT
     Route: 048
     Dates: start: 20000224, end: 20040901
  2. VIOXX [Suspect]
     Route: 048
     Dates: start: 20000224, end: 20040901
  3. VIOXX [Suspect]
     Indication: BACK INJURY
     Route: 048
     Dates: start: 20000224, end: 20040901
  4. VIOXX [Suspect]
     Route: 048
     Dates: start: 20000224, end: 20040901
  5. FLOMAX (MORNIFLUMATE) [Concomitant]
     Indication: PROSTATIC DISORDER
     Route: 065
  6. PRILOSEC [Concomitant]
     Indication: GASTROOESOPHAGEAL REFLUX DISEASE
     Route: 065
  7. ULTRACET [Concomitant]
     Route: 065
  8. CIPRO [Concomitant]
     Route: 065
  9. OMEPRAZOLE [Concomitant]
     Route: 065
  10. HYDROCODONE HYDROCHLORIDE [Concomitant]
     Route: 065
  11. CELEBREX [Suspect]
     Route: 065
     Dates: start: 20000201, end: 20000301
  12. METHOCARBAMOL [Concomitant]
     Route: 065
  13. CEPHALEXIN [Concomitant]
     Route: 065
  14. NEURONTIN [Concomitant]
     Route: 065
  15. OXYCONTIN [Concomitant]
     Route: 065
  16. PREDNISONE [Concomitant]
     Route: 065

REACTIONS (7)
  - CARDIAC FAILURE CONGESTIVE [None]
  - DIABETES MELLITUS [None]
  - DIARRHOEA [None]
  - DYSPEPSIA [None]
  - GASTROOESOPHAGEAL REFLUX DISEASE [None]
  - MYOCARDIAL INFARCTION [None]
  - PROSTATIC DISORDER [None]
